FAERS Safety Report 9209204 (Version 1)
Quarter: 2013Q2

REPORT INFORMATION
  Report Type: Spontaneous
  Country: US (occurrence: None)
  Receive Date: 20130403
  Receipt Date: 20130403
  Transmission Date: 20140414
  Serious: Yes (Other)
  Sender: FDA-Public Use
  Company Number: None

PATIENT
  Age: 18 Year
  Sex: Female
  Weight: 71.67 kg

DRUGS (2)
  1. NORGESTIMATE - ETHYL ESTRADIOL [Suspect]
     Indication: ORAL CONTRACEPTION
     Dosage: 1 TAB QD PO
     Route: 048
     Dates: start: 20130302
  2. NORGESTIMATE - ETHYL ESTRADIOL [Suspect]
     Indication: MENSTRUATION IRREGULAR
     Dosage: 1 TAB QD PO
     Route: 048
     Dates: start: 20130302

REACTIONS (2)
  - Metrorrhagia [None]
  - Malaise [None]
